FAERS Safety Report 19163856 (Version 1)
Quarter: 2021Q2

REPORT INFORMATION
  Report Type: Spontaneous
  Country: US (occurrence: US)
  Receive Date: 20210420
  Receipt Date: 20210420
  Transmission Date: 20210717
  Serious: No
  Sender: FDA-Public Use
  Company Number: None

PATIENT
  Age: 62 Year
  Sex: Female
  Weight: 111.15 kg

DRUGS (2)
  1. BAMLANIVIMAB/ETESEVIMAB [Suspect]
     Active Substance: BAMLANIVIMAB\ETESEVIMAB
     Indication: COVID-19
     Route: 042
  2. NACL 0.9% [Concomitant]
     Active Substance: SODIUM CHLORIDE
     Dates: start: 20210407, end: 20210407

REACTIONS (5)
  - Vomiting [None]
  - Pyrexia [None]
  - Chills [None]
  - Asthenia [None]
  - Nausea [None]

NARRATIVE: CASE EVENT DATE: 20210407
